FAERS Safety Report 4667305-0 (Version None)
Quarter: 2005Q2

REPORT INFORMATION
  Report Type: 
  Country: None (occurrence: None)
  Receive Date: 20050520
  Receipt Date: 20040917
  Transmission Date: 20051028
  Serious: Yes (Other)
  Sender: FDA-Public Use
  Company Number: PHEH2004US10169

PATIENT
  Age: 44 Year
  Sex: Female

DRUGS (3)
  1. TAXOTERE [Concomitant]
     Dosage: Q3WKS
     Dates: start: 20001208
  2. DEXAMETHASONE [Concomitant]
     Dosage: 8MG BID X 3DAYS WITH CHEMO
     Dates: start: 20001201
  3. ZOMETA [Suspect]
     Indication: BREAST CANCER METASTATIC
     Dosage: 4 MG, QMO
     Route: 042
     Dates: start: 20010101, end: 20040515

REACTIONS (5)
  - BONE DISORDER [None]
  - OSTEONECROSIS [None]
  - PAIN IN JAW [None]
  - WOUND DEBRIDEMENT [None]
  - WOUND DEHISCENCE [None]
